FAERS Safety Report 18069138 (Version 19)
Quarter: 2023Q1

REPORT INFORMATION
  Report Type: Report from Study
  Country: JP (occurrence: JP)
  Receive Date: 20200725
  Receipt Date: 20230102
  Transmission Date: 20230417
  Serious: Yes (Hospitalization, Other)
  Sender: FDA-Public Use
  Company Number: JP-ONO-2020JP017268

PATIENT
  Age: 61 Year
  Sex: Male
  Weight: 59.1 kg

DRUGS (23)
  1. ETELCALCETIDE [Suspect]
     Active Substance: ETELCALCETIDE
     Indication: Hyperparathyroidism secondary
     Dosage: UNK
     Route: 065
  2. ETELCALCETIDE [Suspect]
     Active Substance: ETELCALCETIDE
     Dosage: 2.5 MILLIGRAM
     Route: 065
     Dates: start: 20190419, end: 20190617
  3. ETELCALCETIDE [Suspect]
     Active Substance: ETELCALCETIDE
     Dosage: 5 UNK
     Route: 065
     Dates: start: 20190619, end: 20190819
  4. ETELCALCETIDE [Suspect]
     Active Substance: ETELCALCETIDE
     Dosage: 2.5 MILLIGRAM, QWK
     Route: 065
     Dates: start: 20190619, end: 20190819
  5. ETELCALCETIDE [Suspect]
     Active Substance: ETELCALCETIDE
     Dosage: 5 MILLIGRAM
     Route: 065
     Dates: start: 20190821
  6. ETELCALCETIDE [Suspect]
     Active Substance: ETELCALCETIDE
     Dosage: 2.5 MILLIGRAM
     Route: 010
     Dates: start: 20190419, end: 20190617
  7. ETELCALCETIDE [Suspect]
     Active Substance: ETELCALCETIDE
     Dosage: 5 UNK
     Route: 065
     Dates: start: 20190619, end: 20190819
  8. ETELCALCETIDE [Suspect]
     Active Substance: ETELCALCETIDE
     Dosage: 2.5 MILLIGRAM, QWK
     Route: 065
     Dates: start: 20190619, end: 20190819
  9. ETELCALCETIDE [Suspect]
     Active Substance: ETELCALCETIDE
     Dosage: 5 MILLIGRAM
     Route: 065
     Dates: start: 20190821
  10. CINACALCET HYDROCHLORIDE [Concomitant]
     Active Substance: CINACALCET HYDROCHLORIDE
     Dosage: 50 MG, EVERYDAY
     Route: 048
     Dates: end: 20190508
  11. OXAROL MARUHO [Concomitant]
     Dosage: 2.5 UG, Q56H
     Route: 065
     Dates: end: 20191111
  12. OXAROL MARUHO [Concomitant]
     Dosage: 5 UG, Q56H
     Dates: start: 20200122, end: 20200624
  13. OXAROL MARUHO [Concomitant]
     Dosage: 2.5 UG, Q84H
     Dates: start: 20200626, end: 20200810
  14. OXAROL MARUHO [Concomitant]
     Dosage: 5 UG, Q56H
     Dates: start: 20210611
  15. OXAROL MARUHO [Concomitant]
     Dosage: 5 UG, QW
     Dates: start: 20200626, end: 20200805
  16. FOSRENOL [Concomitant]
     Active Substance: LANTHANUM CARBONATE
     Dosage: 1500 MG, EVERYDAY
     Route: 065
     Dates: end: 20200825
  17. FERRIC CITRATE ANHYDROUS [Concomitant]
     Active Substance: FERRIC CITRATE ANHYDROUS
     Dosage: 1500 MG, EVERYDAY
     Route: 065
     Dates: end: 20200825
  18. FERRIC CITRATE ANHYDROUS [Concomitant]
     Active Substance: FERRIC CITRATE ANHYDROUS
     Dosage: 1500 MG, EVERYDAY
     Route: 065
     Dates: start: 20210428
  19. Fesin [Concomitant]
     Dosage: 40 MG, MONTHLY
     Route: 065
     Dates: start: 20210409
  20. DARBEPOETIN ALFA [Concomitant]
     Active Substance: DARBEPOETIN ALFA
     Dosage: 40 UG, QW
     Route: 065
     Dates: start: 20191122, end: 20200228
  21. DARBEPOETIN ALFA [Concomitant]
     Active Substance: DARBEPOETIN ALFA
     Dosage: 60 UG, QW
     Dates: start: 20200306, end: 20200403
  22. DARBEPOETIN ALFA [Concomitant]
     Active Substance: DARBEPOETIN ALFA
     Dosage: 40 MICROGRAM, QWK
     Route: 065
     Dates: start: 20191122, end: 20200228
  23. DARBEPOETIN ALFA [Concomitant]
     Active Substance: DARBEPOETIN ALFA
     Dosage: 60 MICROGRAM, QWK
     Route: 065
     Dates: start: 20200306, end: 20200403

REACTIONS (15)
  - Sepsis [Recovered/Resolved]
  - Klebsiella bacteraemia [Recovered/Resolved]
  - Large intestine perforation [Recovered/Resolved]
  - Shunt occlusion [Recovered/Resolved]
  - Shunt occlusion [Recovered/Resolved]
  - Shunt occlusion [Recovering/Resolving]
  - Shunt occlusion [Recovering/Resolving]
  - Thrombophlebitis septic [Recovered/Resolved]
  - Shunt occlusion [Recovering/Resolving]
  - Shunt occlusion [Unknown]
  - Shunt occlusion [Recovering/Resolving]
  - Shunt occlusion [Recovering/Resolving]
  - Shunt stenosis [Recovered/Resolved]
  - Shunt stenosis [Recovering/Resolving]
  - Shunt stenosis [Recovering/Resolving]

NARRATIVE: CASE EVENT DATE: 20191010
